FAERS Safety Report 16895052 (Version 2)
Quarter: 2020Q3

REPORT INFORMATION
  Report Type: Spontaneous
  Country: CA (occurrence: CA)
  Receive Date: 20191008
  Receipt Date: 20200819
  Transmission Date: 20201102
  Serious: Yes (Death, Hospitalization)
  Sender: FDA-Public Use
  Company Number: CA-PFIZER INC-2019418857

PATIENT
  Age: 81 Year
  Sex: Female
  Weight: 77 kg

DRUGS (2)
  1. IBRANCE [Suspect]
     Active Substance: PALBOCICLIB
     Dosage: 125 MG, UNK
     Dates: start: 20190916
  2. LETROZOLE. [Concomitant]
     Active Substance: LETROZOLE
     Dosage: UNK

REACTIONS (3)
  - Fall [Unknown]
  - Pain [Unknown]
  - Death [Fatal]

NARRATIVE: CASE EVENT DATE: 20190924
